FAERS Safety Report 10027768 (Version 1)
Quarter: 2014Q1

REPORT INFORMATION
  Report Type: Spontaneous
  Country: PE (occurrence: PE)
  Receive Date: 20140321
  Receipt Date: 20140321
  Transmission Date: 20141002
  Serious: Yes (Hospitalization)
  Sender: FDA-Public Use
  Company Number: PE-ELI_LILLY_AND_COMPANY-PE201403007071

PATIENT
  Age: 53 Year
  Sex: Male

DRUGS (2)
  1. STRATTERA [Suspect]
     Indication: ATTENTION DEFICIT/HYPERACTIVITY DISORDER
     Dosage: 60 MG, UNK
     Route: 065
  2. STRATTERA [Suspect]
     Dosage: 80 MG, UNK
     Route: 065

REACTIONS (2)
  - Urinary tract obstruction [Unknown]
  - Bladder hypertrophy [Unknown]
